FAERS Safety Report 5808812 (Version 2)
Quarter: 2012Q4

REPORT INFORMATION
  Report Type: 
  Country: US (occurrence: US)
  Receive Date: 20050531
  Receipt Date: 20121121
  Transmission Date: 20130627
  Serious: Yes (Hospitalization, Disabling)
  Sender: FDA-Public Use
  Company Number: US-JNJFOC-20050507184

PATIENT
  Sex: Male

DRUGS (28)
  1. IBUPROFEN [Suspect]
     Indication: PAIN
     Route: 048
  2. LITHIUM [Interacting]
     Indication: BIPOLAR DISORDER
     Route: 048
  3. BEXTRA [Interacting]
     Indication: ARTHRITIS
     Route: 048
     Dates: start: 200301
  4. PHAZYME [Suspect]
     Indication: FLATULENCE
     Route: 048
     Dates: start: 2000
  5. VIOXX [Suspect]
     Indication: ILL-DEFINED DISORDER
     Route: 048
     Dates: end: 200301
  6. IBUPROFEN [Suspect]
     Route: 048
  7. IBUPROFEN [Suspect]
     Indication: PAIN
     Route: 048
  8. MULTIVITAMINS [Concomitant]
     Route: 065
  9. ASCORBIC ACID [Concomitant]
     Route: 065
  10. ACIDOPHILUS [Concomitant]
     Route: 065
  11. GARLIC [Concomitant]
     Route: 065
  12. VITAMIN E [Concomitant]
  13. NEURONTIN [Concomitant]
  14. CELEBREX [Concomitant]
     Route: 065
  15. PRILOSEC [Concomitant]
     Route: 065
  16. CLARITIN [Concomitant]
  17. IMITREX [Concomitant]
     Route: 065
  18. BUSPAR [Concomitant]
     Route: 065
  19. SLEEPING TABLETS [Concomitant]
  20. COLACE [Concomitant]
     Route: 065
  21. EFFEXOR [Concomitant]
     Route: 065
  22. PULMICORT [Concomitant]
     Route: 065
  23. ALBUTEROL [Concomitant]
     Route: 065
  24. SEREVENT [Concomitant]
  25. ATROVENT [Concomitant]
     Route: 065
  26. ASPIRIN [Concomitant]
     Route: 065
     Dates: start: 1990
  27. SINGULAIR [Concomitant]
     Route: 065
  28. ALL OTHER THERAPEUTIC PRODUCTS [Concomitant]
     Route: 065

REACTIONS (12)
  - Coma [Recovered/Resolved]
  - Cerebrovascular accident [Recovered/Resolved with Sequelae]
  - Renal failure [Recovered/Resolved]
  - Hemiplegia [Not Recovered/Not Resolved]
  - Amnesia [Not Recovered/Not Resolved]
  - Hallucination [Recovered/Resolved]
  - Speech disorder [Recovered/Resolved]
  - Gait disturbance [Not Recovered/Not Resolved]
  - Drug interaction [Unknown]
  - Activities of daily living impaired [Unknown]
  - Influenza [Recovered/Resolved]
  - Malaise [Recovered/Resolved]
